FAERS Safety Report 15930922 (Version 16)
Quarter: 2022Q2

REPORT INFORMATION
  Report Type: Other
  Country: CA (occurrence: CA)
  Receive Date: 20190207
  Receipt Date: 20220407
  Transmission Date: 20220720
  Serious: Yes (Hospitalization, Other)
  Sender: FDA-Public Use
  Company Number: CA-002147023-PHHY2019CA021103

PATIENT
  Age: 34 Year
  Sex: Female
  Weight: 62 kg

DRUGS (14)
  1. XOLAIR [Suspect]
     Active Substance: OMALIZUMAB
     Indication: Chronic spontaneous urticaria
     Route: 058
     Dates: start: 20190125
  2. XOLAIR [Suspect]
     Active Substance: OMALIZUMAB
     Route: 058
     Dates: start: 20190226
  3. XOLAIR [Suspect]
     Active Substance: OMALIZUMAB
     Route: 058
     Dates: start: 20190322
  4. XOLAIR [Suspect]
     Active Substance: OMALIZUMAB
     Route: 058
     Dates: start: 20190518
  5. XOLAIR [Suspect]
     Active Substance: OMALIZUMAB
     Route: 058
     Dates: start: 20190612
  6. XOLAIR [Suspect]
     Active Substance: OMALIZUMAB
     Route: 058
     Dates: start: 20190422
  7. XOLAIR [Suspect]
     Active Substance: OMALIZUMAB
     Route: 058
     Dates: start: 20200117
  8. XOLAIR [Suspect]
     Active Substance: OMALIZUMAB
     Route: 058
  9. BENADRYL [Concomitant]
     Active Substance: DIPHENHYDRAMINE HYDROCHLORIDE
     Indication: Product used for unknown indication
     Dosage: 3 DF, PRN
     Route: 030
     Dates: start: 2016
  10. VENTOLIN [Concomitant]
     Active Substance: ALBUTEROL SULFATE
     Indication: Product used for unknown indication
     Dosage: 2 DF, TID
     Route: 055
     Dates: start: 2017
  11. VENTOLIN [Concomitant]
     Active Substance: ALBUTEROL SULFATE
     Dosage: UNK, PRN
     Route: 065
  12. ALLEGRA [Concomitant]
     Active Substance: FEXOFENADINE HYDROCHLORIDE
     Indication: Product used for unknown indication
     Dosage: UNK
     Route: 065
  13. ZENHALE [Concomitant]
     Active Substance: FORMOTEROL FUMARATE\MOMETASONE FUROATE
     Indication: Product used for unknown indication
     Dosage: UNK UNK, QD
     Route: 065
  14. CETIRIZINE HYDROCHLORIDE [Concomitant]
     Active Substance: CETIRIZINE HYDROCHLORIDE

REACTIONS (40)
  - Anaphylactic shock [Unknown]
  - Hypersensitivity [Recovered/Resolved]
  - Blood pressure increased [Recovering/Resolving]
  - Nausea [Recovering/Resolving]
  - Contrast media reaction [Unknown]
  - Weight decreased [Unknown]
  - Heavy menstrual bleeding [Recovering/Resolving]
  - Mast cell activation syndrome [Unknown]
  - Blindness unilateral [Unknown]
  - Loss of consciousness [Unknown]
  - Anaphylactic reaction [Unknown]
  - Pruritus [Recovered/Resolved]
  - Retching [Recovering/Resolving]
  - Hyperhidrosis [Recovered/Resolved]
  - Cold sweat [Recovering/Resolving]
  - Dizziness [Recovering/Resolving]
  - Postprandial hypoglycaemia [Unknown]
  - Swollen tongue [Recovering/Resolving]
  - Fatigue [Recovering/Resolving]
  - Pain [Recovering/Resolving]
  - Throat tightness [Recovering/Resolving]
  - Glossodynia [Recovering/Resolving]
  - Oropharyngeal pain [Recovering/Resolving]
  - Food allergy [Unknown]
  - Respiratory disorder [Unknown]
  - Gastrointestinal disorder [Unknown]
  - Chest pain [Unknown]
  - Serum ferritin decreased [Recovering/Resolving]
  - Blood calcium increased [Recovering/Resolving]
  - Chest discomfort [Unknown]
  - Oropharyngeal discomfort [Unknown]
  - Malaise [Unknown]
  - Anxiety [Unknown]
  - Feeling abnormal [Unknown]
  - Migraine [Unknown]
  - Urticaria [Unknown]
  - Pyrexia [Unknown]
  - Headache [Unknown]
  - Inappropriate schedule of product administration [Unknown]
  - Product dose omission issue [Unknown]

NARRATIVE: CASE EVENT DATE: 20190125
